FAERS Safety Report 7730195-3 (Version None)
Quarter: 2011Q3

REPORT INFORMATION
  Report Type: 
  Country: None (occurrence: None)
  Receive Date: 20110906
  Receipt Date: 20110830
  Transmission Date: 20111222
  Serious: Yes (Death)
  Sender: FDA-Public Use
  Company Number: JP-ASTRAZENECA-2011SE52549

PATIENT
  Sex: Male

DRUGS (2)
  1. MEROPENEM [Suspect]
     Indication: LARGE INTESTINE PERFORATION
     Route: 042
     Dates: start: 20110818, end: 20110823
  2. MIRACLID [Concomitant]
     Dates: start: 20110818, end: 20110823

REACTIONS (1)
  - HEPATIC FUNCTION ABNORMAL [None]
